FAERS Safety Report 15969368 (Version 1)
Quarter: 2019Q1

REPORT INFORMATION
  Report Type: Spontaneous
  Country: SE (occurrence: SE)
  Receive Date: 20190215
  Receipt Date: 20190215
  Transmission Date: 20190418
  Serious: Yes (Death, Life-Threatening, Hospitalization)
  Sender: FDA-Public Use
  Company Number: SE-TEVA-2019-SE-1011744

PATIENT
  Age: 56 Year
  Sex: Male

DRUGS (9)
  1. ENBREL [Concomitant]
     Active Substance: ETANERCEPT
  2. REMICADE [Concomitant]
     Active Substance: INFLIXIMAB
     Dates: start: 2008
  3. METOPROLOL (NON AZ PRODUCT) [Suspect]
     Active Substance: METOPROLOL
     Indication: ILL-DEFINED DISORDER
     Dosage: 50 MILLIGRAM DAILY; DOSAGE FORM: PROLONGED-RELEASE TABLET
     Route: 065
  4. SIMPONI [Suspect]
     Active Substance: GOLIMUMAB
     Indication: ANKYLOSING SPONDYLITIS
     Dosage: DOSAGE FORM: LIQUID
     Route: 058
     Dates: start: 20111003
  5. PRONAXEN (NON AZ PRODUCT) [Suspect]
     Active Substance: NAPROXEN
     Indication: ILL-DEFINED DISORDER
     Dosage: 500 MILLIGRAM DAILY;
     Route: 065
  6. SALAZOPYRIN [Concomitant]
     Active Substance: SULFASALAZINE
  7. PRONAXEN [Concomitant]
     Active Substance: NAPROXEN
  8. CRESTOR [Suspect]
     Active Substance: ROSUVASTATIN CALCIUM
     Indication: ILL-DEFINED DISORDER
     Dosage: 20 MILLIGRAM DAILY; DOSAGE FORM: FILM COATED TABLET
     Route: 048
     Dates: start: 20111003, end: 20111029
  9. HUMIRA [Concomitant]
     Active Substance: ADALIMUMAB

REACTIONS (4)
  - Cholecystitis [Fatal]
  - Presyncope [Unknown]
  - Presyncope [Fatal]
  - Cardiac failure acute [Fatal]

NARRATIVE: CASE EVENT DATE: 20111003
